FAERS Safety Report 12961459 (Version 3)
Quarter: 2018Q2

REPORT INFORMATION
  Report Type: Spontaneous
  Country: US (occurrence: US)
  Receive Date: 20161121
  Receipt Date: 20180612
  Transmission Date: 20180711
  Serious: Yes (Death, Hospitalization, Other)
  Sender: FDA-Public Use
  Company Number: US-BAYER-2016-218290

PATIENT
  Age: 74 Year
  Sex: Male

DRUGS (3)
  1. TYVASO [Concomitant]
     Active Substance: TREPROSTINIL
     Indication: PULMONARY HYPERTENSION
  2. WARFARIN [Concomitant]
     Active Substance: WARFARIN
     Dosage: UNK
     Dates: end: 201608
  3. ADEMPAS [Suspect]
     Active Substance: RIOCIGUAT
     Indication: PULMONARY HYPERTENSION
     Dosage: 1 MG, TID
     Route: 048
     Dates: start: 20150915, end: 20170519

REACTIONS (9)
  - Head injury [None]
  - Fall [None]
  - Subdural haematoma [None]
  - Death [Fatal]
  - Subarachnoid haemorrhage [None]
  - Head injury [None]
  - Laceration [None]
  - Laceration [None]
  - Syncope [None]

NARRATIVE: CASE EVENT DATE: 20160826
